FAERS Safety Report 4959599-9 (Version None)
Quarter: 2006Q1

REPORT INFORMATION
  Report Type: 
  Country: None (occurrence: None)
  Receive Date: 20060324
  Receipt Date: 20060314
  Transmission Date: 20060701
  Serious: Yes (Hospitalization, Other)
  Sender: FDA-Public Use
  Company Number: 2006030433

PATIENT
  Sex: Female
  Weight: 48.9885 kg

DRUGS (4)
  1. LIPITOR [Suspect]
     Indication: BLOOD CHOLESTEROL INCREASED
     Dosage: (20 MG)
  2. COATED ASPIRIN (ACETYLSALICYLIC ACID) [Suspect]
     Indication: ILL-DEFINED DISORDER
  3. ASPIRIN [Concomitant]
  4. MECLIZINE [Concomitant]

REACTIONS (8)
  - CONSTIPATION [None]
  - DIABETES MELLITUS [None]
  - DIZZINESS [None]
  - ERYTHEMA [None]
  - FLATULENCE [None]
  - MENINGIOMA [None]
  - NEOPLASM RECURRENCE [None]
  - REACTION TO PRESERVATIVES [None]
